FAERS Safety Report 4695002-4 (Version None)
Quarter: 2005Q2

REPORT INFORMATION
  Report Type: 
  Country: None (occurrence: None)
  Receive Date: 20050617
  Receipt Date: 20050608
  Transmission Date: 20051028
  Serious: Yes (Other)
  Sender: FDA-Public Use
  Company Number: 2005-06-0420

PATIENT
  Age: 46 Year
  Sex: Female
  Weight: 50 kg

DRUGS (5)
  1. INTRON A [Suspect]
     Indication: HEPATITIS C
     Dosage: INTRAMUSCULAR
     Route: 030
     Dates: start: 20040419, end: 20040801
  2. REBETOL [Suspect]
     Indication: HEPATITIS C
     Dosage: ORAL
     Route: 048
     Dates: start: 20040419, end: 20040801
  3. LUDIOMIL [Concomitant]
  4. SULPIRIDE [Concomitant]
  5. MILNACIPRAN [Concomitant]

REACTIONS (3)
  - ALOPECIA [None]
  - COGNITIVE DISORDER [None]
  - DISORIENTATION [None]
